FAERS Safety Report 6527381-7 (Version None)
Quarter: 2010Q1

REPORT INFORMATION
  Report Type: 
  Country: None (occurrence: None)
  Receive Date: 20100104
  Receipt Date: 20100104
  Transmission Date: 20100710
  Serious: No
  Sender: FDA-Public Use
  Company Number: None

PATIENT
  Age: 59 Year
  Sex: Female
  Weight: 72.5755 kg

DRUGS (1)
  1. ZICAM RAPID MELTS MATRIXX INITIATIVES, INC [Suspect]
     Indication: NASOPHARYNGITIS
     Dosage: 1 TAB DISSOLVED IN MOUTH Q3H PO
     Route: 048
     Dates: start: 20091216, end: 20091217

REACTIONS (3)
  - DYSGEUSIA [None]
  - POSTNASAL DRIP [None]
  - SINUS DISORDER [None]
